FAERS Safety Report 19621116 (Version 1)
Quarter: 2021Q3

REPORT INFORMATION
  Report Type: Spontaneous
  Country: US (occurrence: US)
  Receive Date: 20210728
  Receipt Date: 20210728
  Transmission Date: 20211014
  Serious: No
  Sender: FDA-Public Use
  Company Number: None

PATIENT

DRUGS (1)
  1. OXYCODONE?ACETAMINOPEN 10?325 GENERIC FOR PERCOCET [Suspect]
     Active Substance: ACETAMINOPHEN\OXYCODONE HYDROCHLORIDE
     Indication: SCIATICA
     Dosage: ?          OTHER STRENGTH:10?325;?
     Dates: start: 2010

REACTIONS (2)
  - Adverse drug reaction [None]
  - Suspected product quality issue [None]
